FAERS Safety Report 19138054 (Version 3)
Quarter: 2021Q3

REPORT INFORMATION
  Report Type: Other
  Country: JP (occurrence: JP)
  Receive Date: 20210414
  Receipt Date: 20210902
  Transmission Date: 20211014
  Serious: Yes (Hospitalization, Other)
  Sender: FDA-Public Use
  Company Number: JP-ROCHE-2805505

PATIENT
  Age: 62 Year
  Sex: Male
  Weight: 76 kg

DRUGS (10)
  1. VINCRISTINE SULFATE. [Concomitant]
     Active Substance: VINCRISTINE SULFATE
     Indication: FOLLICULAR LYMPHOMA
     Route: 041
  2. DOXORUBICIN HYDROCHLORIDE. [Concomitant]
     Active Substance: DOXORUBICIN HYDROCHLORIDE
     Indication: FOLLICULAR LYMPHOMA
     Route: 041
  3. CYCLOPHOSPHAMIDE HYDRATE [Concomitant]
     Active Substance: CYCLOPHOSPHAMIDE
     Indication: FOLLICULAR LYMPHOMA
     Route: 041
  4. PREDNISOLONE. [Concomitant]
     Active Substance: PREDNISOLONE
     Indication: FOLLICULAR LYMPHOMA
     Route: 048
  5. RITUXAN [Suspect]
     Active Substance: RITUXIMAB
     Indication: FOLLICULAR LYMPHOMA
     Route: 041
  6. IBRITUMOMAB TIUXETAN [Concomitant]
     Active Substance: IBRITUMOMAB TIUXETAN
  7. VINCRISTINE SULFATE. [Concomitant]
     Active Substance: VINCRISTINE SULFATE
     Route: 041
  8. GAZYVA [Suspect]
     Active Substance: OBINUTUZUMAB
     Indication: FOLLICULAR LYMPHOMA
     Dosage: ON 16/AUG/2019, 23/AUG/2019 AND 25/SEP/2019, HE SUBSEQUENT DOSES OF OBINUTUZUMAB.
     Route: 041
     Dates: start: 20190809, end: 20190809
  9. BENDAMUSTINE HYDROCHLORIDE. [Suspect]
     Active Substance: BENDAMUSTINE HYDROCHLORIDE
     Indication: FOLLICULAR LYMPHOMA
     Route: 042
  10. BENDAMUSTINE HYDROCHLORIDE. [Suspect]
     Active Substance: BENDAMUSTINE HYDROCHLORIDE
     Route: 042
     Dates: start: 20190813, end: 20190927

REACTIONS (3)
  - Myelosuppression [Unknown]
  - Bronchitis [Unknown]
  - Glossitis [Recovered/Resolved]

NARRATIVE: CASE EVENT DATE: 20191018
